FAERS Safety Report 6186725-9 (Version None)
Quarter: 2009Q2

REPORT INFORMATION
  Report Type: 
  Country: None (occurrence: None)
  Receive Date: 20090508
  Receipt Date: 20090508
  Transmission Date: 20091009
  Serious: Yes (Other)
  Sender: FDA-Public Use
  Company Number: None

PATIENT
  Sex: Female
  Weight: 102.9665 kg

DRUGS (1)
  1. RELENZA [Suspect]
     Indication: INFLUENZA
     Dosage: I INHALATION BID INHAL
     Route: 055
     Dates: start: 20090427, end: 20090501

REACTIONS (2)
  - BRADYCARDIA [None]
  - HYPOTENSION [None]
